FAERS Safety Report 6011722-3 (Version None)
Quarter: 2008Q4

REPORT INFORMATION
  Report Type: 
  Country: None (occurrence: None)
  Receive Date: 20081218
  Receipt Date: 20081212
  Transmission Date: 20090506
  Serious: Yes (Death)
  Sender: FDA-Public Use
  Company Number: JP-EISAI MEDICAL RESEARCH-E2090-00610-SPO-JP

PATIENT
  Sex: Male

DRUGS (7)
  1. EXCEGRAN [Suspect]
     Indication: EPILEPSY
     Route: 048
     Dates: start: 20080408, end: 20080512
  2. DEPAKENE [Concomitant]
     Indication: EPILEPSY
     Route: 048
     Dates: start: 20080513, end: 20081107
  3. DEPAKENE [Concomitant]
     Route: 048
     Dates: start: 20081108, end: 20081113
  4. TAKEPRON [Concomitant]
     Indication: PROPHYLAXIS AGAINST GASTROINTESTINAL ULCER
     Route: 048
     Dates: start: 20081030, end: 20081112
  5. BARACLUDE (ENTECAVIR HYDRATE) [Concomitant]
     Indication: HEPATITIS B
     Route: 048
     Dates: start: 20081031, end: 20081103
  6. BARACLUDE (ENTECAVIR HYDRATE) [Concomitant]
     Route: 048
     Dates: start: 20081104, end: 20081113
  7. SOLU-MEDROL [Concomitant]
     Indication: DRUG RASH WITH EOSINOPHILIA AND SYSTEMIC SYMPTOMS
     Route: 048
     Dates: start: 20081108, end: 20081110

REACTIONS (2)
  - DRUG RASH WITH EOSINOPHILIA AND SYSTEMIC SYMPTOMS [None]
  - RENAL FAILURE [None]
